FAERS Safety Report 14134364 (Version 2)
Quarter: 2017Q4

REPORT INFORMATION
  Report Type: Report from Study
  Country: CN (occurrence: CN)
  Receive Date: 20171027
  Receipt Date: 20171101
  Transmission Date: 20180321
  Serious: Yes (Death, Hospitalization, Other)
  Sender: FDA-Public Use
  Company Number: CN-ASTRAZENECA-2017SE97225

PATIENT
  Sex: Female

DRUGS (2)
  1. FASLODEX [Suspect]
     Active Substance: FULVESTRANT
     Indication: BREAST CANCER FEMALE
     Dosage: 250MGX2 MONTHLY
     Route: 030
     Dates: start: 20170622
  2. VITAMINS NOS [Concomitant]
     Active Substance: VITAMINS

REACTIONS (12)
  - Respiratory failure [Fatal]
  - Listless [Unknown]
  - Atrial fibrillation [Unknown]
  - Dyspnoea [Unknown]
  - Mobility decreased [Unknown]
  - General physical health deterioration [Unknown]
  - Metastases to chest wall [Unknown]
  - Asthenia [Unknown]
  - Pleural effusion [Not Recovered/Not Resolved]
  - Pneumonia [Not Recovered/Not Resolved]
  - Abdominal pain upper [Unknown]
  - Cardiac failure [Fatal]
